FAERS Safety Report 8091988-9 (Version None)
Quarter: 2012Q1

REPORT INFORMATION
  Report Type: 
  Country: None (occurrence: None)
  Receive Date: 20120129
  Receipt Date: 20111202
  Transmission Date: 20120608
  Serious: No
  Sender: FDA-Public Use
  Company Number: US-ABBOTT-11P-163-0868219-00

PATIENT
  Age: 55 Year
  Sex: Female

DRUGS (3)
  1. LEVOXYL [Concomitant]
     Indication: THYROID DISORDER
     Route: 048
  2. CRESTOR [Concomitant]
     Indication: PRODUCT USED FOR UNKNOWN INDICATION
     Route: 048
  3. HUMIRA [Suspect]
     Indication: PSORIATIC ARTHROPATHY
     Dates: start: 20110211, end: 20111009

REACTIONS (2)
  - ANAEMIA [None]
  - DYSFUNCTIONAL UTERINE BLEEDING [None]
